FAERS Safety Report 9313643 (Version 2)
Quarter: 2013Q2

REPORT INFORMATION
  Report Type: Spontaneous
  Country: US (occurrence: US)
  Receive Date: 20130529
  Receipt Date: 20130619
  Transmission Date: 20140414
  Serious: No
  Sender: FDA-Public Use
  Company Number: US-009507513-1206USA02611

PATIENT
  Sex: Female

DRUGS (5)
  1. COZAAR [Suspect]
     Indication: HYPERTENSION
     Dosage: 100 MG, QD
     Route: 048
     Dates: start: 201105, end: 201105
  2. COZAAR [Suspect]
     Dosage: 100 MG, QD
     Route: 048
     Dates: start: 2011
  3. PLAVIX [Concomitant]
  4. TOPROL XL TABLETS [Concomitant]
  5. AVAPRO [Suspect]

REACTIONS (7)
  - Musculoskeletal stiffness [Unknown]
  - Feeling abnormal [Recovering/Resolving]
  - Cardiac flutter [Recovering/Resolving]
  - Dizziness [Unknown]
  - Drug ineffective [Not Recovered/Not Resolved]
  - Fatigue [Unknown]
  - Myalgia [Not Recovered/Not Resolved]
